FAERS Safety Report 5334488-9 (Version None)
Quarter: 2007Q2

REPORT INFORMATION
  Report Type: 
  Country: None (occurrence: None)
  Receive Date: 20070522
  Receipt Date: 20070515
  Transmission Date: 20071010
  Serious: Yes (Death)
  Sender: FDA-Public Use
  Company Number: 233808K07USA

PATIENT
  Age: 60 Year
  Sex: Female
  Weight: 93.8946 kg

DRUGS (2)
  1. REBIF [Suspect]
     Indication: MULTIPLE SCLEROSIS
     Dosage: 44 MCG, 3 IN 1 WEEKS, SUBCUTANEOUS
     Route: 058
     Dates: start: 20031101, end: 20050701
  2. COPAXONE [Suspect]
     Dosage: 20 MG, NOT REPORTED, SUBCUTANEOUS
     Route: 058
     Dates: start: 20001113, end: 20030101

REACTIONS (2)
  - METASTASES TO CENTRAL NERVOUS SYSTEM [None]
  - NEOPLASM MALIGNANT [None]
